FAERS Safety Report 7935232-9 (Version None)
Quarter: 2011Q4

REPORT INFORMATION
  Report Type: 
  Country: None (occurrence: None)
  Receive Date: 20111122
  Receipt Date: 20111117
  Transmission Date: 20120403
  Serious: Yes (Death, Hospitalization, Other)
  Sender: FDA-Public Use
  Company Number: US-ASTRAZENECA-2011SE53628

PATIENT
  Age: 61 Year
  Sex: Male

DRUGS (15)
  1. ALBUTEROL [Concomitant]
     Dosage: AS REQUIRED
     Route: 055
  2. SYMBICORT [Suspect]
     Route: 055
  3. LEVOTHYROXINE SODIUM [Concomitant]
  4. O2 [Concomitant]
     Dosage: 2L/NC AT NIGHT
  5. PRAVASTATIN [Concomitant]
  6. VENDAL [Concomitant]
     Dosage: AS REQUIRED
  7. FOLBEE [Concomitant]
     Dosage: AM
  8. ALBUTEROL [Concomitant]
     Dosage: AS REQUIRED
  9. ATROVENT [Concomitant]
     Dosage: AS REQUIRED
  10. VITAMIN D [Concomitant]
  11. LISINOPRIL [Suspect]
     Route: 048
     Dates: start: 20090422
  12. MUCINEX [Concomitant]
     Dosage: DAILY AS REQUIRED
  13. VERAPAMIL [Concomitant]
  14. VERAPAMIL [Concomitant]
  15. NEURONTIN [Concomitant]
     Dosage: 300 TID
     Dates: start: 20090401

REACTIONS (12)
  - NEUROPATHY PERIPHERAL [None]
  - CORONARY ARTERY DISEASE [None]
  - LIPIDS INCREASED [None]
  - DEATH [None]
  - AUTOIMMUNE THYROIDITIS [None]
  - MALAISE [None]
  - MYOCARDIAL INFARCTION [None]
  - EMPHYSEMA [None]
  - CHRONIC OBSTRUCTIVE PULMONARY DISEASE [None]
  - DIABETIC NEUROPATHY [None]
  - CARDIAC DISCOMFORT [None]
  - HYPERTENSION [None]
